FAERS Safety Report 6753421-6 (Version None)
Quarter: 2010Q2

REPORT INFORMATION
  Report Type: 
  Country: None (occurrence: None)
  Receive Date: 20100603
  Receipt Date: 20100525
  Transmission Date: 20101027
  Serious: Yes (Hospitalization)
  Sender: FDA-Public Use
  Company Number: SE-ASTRAZENECA-2010SE24481

PATIENT
  Age: 60 Year
  Sex: Male

DRUGS (5)
  1. ATACAND [Suspect]
     Indication: ESSENTIAL HYPERTENSION
     Route: 048
  2. ATACAND [Suspect]
     Dosage: HALF TABLET
     Route: 048
  3. METFORMIN [Concomitant]
  4. BETNOVATE CREAM [Concomitant]
  5. TROMBYL [Concomitant]

REACTIONS (1)
  - ORTHOSTATIC HYPOTENSION [None]
